FAERS Safety Report 20214097 (Version 1)
Quarter: 2021Q4

REPORT INFORMATION
  Report Type: Spontaneous
  Country: US (occurrence: None)
  Receive Date: 20211221
  Receipt Date: 20211221
  Transmission Date: 20220303
  Serious: Yes (Death)
  Sender: FDA-Public Use
  Company Number: None

PATIENT
  Age: 62 Year
  Sex: Female

DRUGS (1)
  1. PROMACTA [Suspect]
     Active Substance: ELTROMBOPAG OLAMINE
     Indication: Aplastic anaemia
     Dosage: FREQUENCY : DAILY;?
     Route: 048
     Dates: start: 20211129, end: 20211206

REACTIONS (9)
  - Cerebrovascular accident [None]
  - Mental status changes [None]
  - Gaze palsy [None]
  - Unresponsive to stimuli [None]
  - Enterococcus test positive [None]
  - Urine analysis abnormal [None]
  - Blood lactic acid increased [None]
  - Septic shock [None]
  - Cardio-respiratory arrest [None]

NARRATIVE: CASE EVENT DATE: 20211207
